FAERS Safety Report 4627975-X (Version None)
Quarter: 2005Q2

REPORT INFORMATION
  Report Type: 
  Country: None (occurrence: None)
  Receive Date: 20050401
  Receipt Date: 20050228
  Transmission Date: 20051028
  Serious: Yes (Other)
  Sender: FDA-Public Use
  Company Number: 2005S1000860

PATIENT
  Age: 42 Year
  Sex: Male
  Weight: 167.8309 kg

DRUGS (1)
  1. FENTANYL [Suspect]
     Indication: PAIN
     Dosage: 75 MCG; TRDL
     Route: 062
     Dates: start: 20050225, end: 20050226

REACTIONS (7)
  - HEADACHE [None]
  - MIOSIS [None]
  - NAUSEA [None]
  - OVERDOSE [None]
  - SEDATION [None]
  - SOMNOLENCE [None]
  - VOMITING [None]
